FAERS Safety Report 5098433-6 (Version None)
Quarter: 2006Q3

REPORT INFORMATION
  Report Type: 
  Country: None (occurrence: None)
  Receive Date: 20060907
  Receipt Date: 20060828
  Transmission Date: 20061208
  Serious: Yes (Hospitalization)
  Sender: FDA-Public Use
  Company Number: PHRM2006FR02438

PATIENT
  Age: 81 Year
  Sex: Male
  Weight: 58 kg

DRUGS (4)
  1. LEPONEX [Suspect]
     Dosage: 25 MG, QD
     Route: 048
  2. TARDYFERON [Concomitant]
     Dosage: 80 MG, QD
     Route: 048
  3. DIHYDROERGOTAMINE MESYLATE [Concomitant]
     Dosage: 20 MG DAILY
     Route: 048
  4. MODOPAR [Concomitant]
     Indication: PARKINSON'S DISEASE
     Dosage: 3 DOSAGE FORM (DF) DAILY
     Route: 048

REACTIONS (11)
  - BLOOD ALBUMIN DECREASED [None]
  - BLOOD IRON DECREASED [None]
  - C-REACTIVE PROTEIN INCREASED [None]
  - DEHYDRATION [None]
  - DEPRESSED LEVEL OF CONSCIOUSNESS [None]
  - DISORIENTATION [None]
  - INFLAMMATION [None]
  - PYREXIA [None]
  - SERUM FERRITIN INCREASED [None]
  - TRANSFERRIN DECREASED [None]
  - WHITE BLOOD CELL COUNT INCREASED [None]
